FAERS Safety Report 4749909-X (Version None)
Quarter: 2005Q3

REPORT INFORMATION
  Report Type: 
  Country: None (occurrence: None)
  Receive Date: 20050822
  Receipt Date: 20050804
  Transmission Date: 20060218
  Serious: Yes (Hospitalization, Other)
  Sender: FDA-Public Use
  Company Number: CA-2005-014490

PATIENT
  Age: 26 Year
  Sex: Female

DRUGS (7)
  1. BETASERON [Suspect]
     Indication: RELAPSING-REMITTING MULTIPLE SCLEROSIS
     Dosage: SEE IMAGE
     Route: 058
     Dates: start: 20050625, end: 20050717
  2. BETASERON [Suspect]
     Indication: RELAPSING-REMITTING MULTIPLE SCLEROSIS
     Dosage: SEE IMAGE
     Route: 058
     Dates: start: 20050717
  3. CELEXA [Concomitant]
  4. ALESSE [Concomitant]
  5. MULTIVITAMINS (RETINOL, PANTHENOL) [Concomitant]
  6. TYLENOL [Concomitant]
  7. ADVIL [Concomitant]

REACTIONS (4)
  - CHOLELITHIASIS [None]
  - INFLUENZA LIKE ILLNESS [None]
  - PAIN [None]
  - PANCREATITIS [None]
